FAERS Safety Report 6293267-9 (Version None)
Quarter: 2009Q3

REPORT INFORMATION
  Report Type: 
  Country: None (occurrence: None)
  Receive Date: 20090731
  Receipt Date: 20090720
  Transmission Date: 20100115
  Serious: Yes (Other)
  Sender: FDA-Public Use
  Company Number: US-WATSON-2009-05676

PATIENT
  Age: 77 Year
  Sex: Male

DRUGS (1)
  1. CARVEDILOL (WATSON LABORATORIES) [Suspect]
     Indication: HYPERTENSION
     Dosage: 6.25 MG, BID
     Route: 048

REACTIONS (3)
  - CONVULSIVE THRESHOLD LOWERED [None]
  - ELECTROENCEPHALOGRAM ABNORMAL [None]
  - NO THERAPEUTIC RESPONSE [None]
